FAERS Safety Report 19461228 (Version 2)
Quarter: 2021Q3

REPORT INFORMATION
  Report Type: Other
  Country: JP (occurrence: JP)
  Receive Date: 20210625
  Receipt Date: 20210924
  Transmission Date: 20211014
  Serious: No
  Sender: FDA-Public Use
  Company Number: JP-BAUSCH-BL-2021-021947

PATIENT
  Age: 2 Decade
  Sex: Female

DRUGS (1)
  1. LUMICEF [Suspect]
     Active Substance: BRODALUMAB
     Indication: PSORIASIS
     Dosage: 210 MILLIGRAM/1.5 ML
     Route: 058

REACTIONS (1)
  - No adverse event [Unknown]
